FAERS Safety Report 16935228 (Version 1)
Quarter: 2019Q4

REPORT INFORMATION
  Report Type: Spontaneous
  Country: US (occurrence: US)
  Receive Date: 20191018
  Receipt Date: 20191018
  Transmission Date: 20200122
  Serious: Yes (Hospitalization)
  Sender: FDA-Public Use
  Company Number: None

PATIENT
  Age: 57 Year
  Sex: Female
  Weight: 91.34 kg

DRUGS (14)
  1. ALBUTEROL INHALER [Concomitant]
     Active Substance: ALBUTEROL
  2. LISINOPRIL 20 MG [Concomitant]
     Active Substance: LISINOPRIL
  3. PRAVASTATIN 40 MG [Concomitant]
     Active Substance: PRAVASTATIN
  4. MELATONIN 3 MG [Concomitant]
  5. FLUTICASONE 50 MCG/INH NASAL SPRAY [Concomitant]
  6. GLIMEPIRIDE 2 MG [Concomitant]
     Active Substance: GLIMEPIRIDE
  7. METFORMIN [Concomitant]
     Active Substance: METFORMIN HYDROCHLORIDE
  8. OZEMPIC [Suspect]
     Active Substance: SEMAGLUTIDE
     Indication: TYPE 2 DIABETES MELLITUS
     Dosage: ?          OTHER FREQUENCY:WEEKLY;?
     Route: 058
     Dates: start: 20191001, end: 20191004
  9. HYDROCHLOROTHIAZIDE 50 MG [Concomitant]
  10. OMEPRAZOLE 40 MG [Concomitant]
     Active Substance: OMEPRAZOLE
  11. ASPIRIN 81 MG [Concomitant]
     Active Substance: ASPIRIN
  12. FLOVENT DISKUS 100 MCG/INH [Concomitant]
  13. LEVOTHYROXINE 125 MCG [Concomitant]
     Active Substance: LEVOTHYROXINE SODIUM
  14. MONTELUKAST 10 MG [Concomitant]
     Active Substance: MONTELUKAST SODIUM

REACTIONS (4)
  - Nausea [None]
  - Pancreatitis [None]
  - Diarrhoea [None]
  - Vomiting [None]

NARRATIVE: CASE EVENT DATE: 20191004
